FAERS Safety Report 5874349-X (Version None)
Quarter: 2008Q3

REPORT INFORMATION
  Report Type: 
  Country: None (occurrence: None)
  Receive Date: 20080908
  Receipt Date: 20080903
  Transmission Date: 20090109
  Serious: Yes (Hospitalization)
  Sender: FDA-Public Use
  Company Number: US-GILEAD-2008-0018001

PATIENT
  Sex: Male

DRUGS (1)
  1. LETAIRIS [Suspect]
     Indication: PORTAL HYPERTENSION
     Route: 048
     Dates: start: 20080716

REACTIONS (1)
  - GASTROINTESTINAL HAEMORRHAGE [None]
